FAERS Safety Report 5568538-1 (Version None)
Quarter: 2007Q4

REPORT INFORMATION
  Report Type: 
  Country: None (occurrence: None)
  Receive Date: 20071220
  Receipt Date: 20071211
  Transmission Date: 20080405
  Serious: Yes (Life-Threatening, Hospitalization)
  Sender: FDA-Public Use
  Company Number: IL-ROCHE-530498

PATIENT
  Age: 64 Year
  Sex: Female

DRUGS (2)
  1. PEGASYS [Suspect]
     Route: 065
     Dates: start: 20070901, end: 20071001
  2. RIBAVIRIN [Concomitant]
     Dosage: DRUG: REBETOL
     Dates: start: 20070901, end: 20071001

REACTIONS (9)
  - ANAEMIA [None]
  - ASTHENIA [None]
  - DECREASED APPETITE [None]
  - DIASTOLIC DYSFUNCTION [None]
  - DYSPHAGIA [None]
  - INFLUENZA LIKE ILLNESS [None]
  - SYNCOPE [None]
  - TACHYCARDIA [None]
  - TINNITUS [None]
